FAERS Safety Report 16035807 (Version 1)
Quarter: 2019Q1

REPORT INFORMATION
  Report Type: Spontaneous
  Country: US (occurrence: US)
  Receive Date: 20190305
  Receipt Date: 20190305
  Transmission Date: 20190418
  Serious: Yes (Hospitalization)
  Sender: FDA-Public Use
  Company Number: PHEH2019US008683

PATIENT
  Age: 52 Year
  Sex: Female

DRUGS (1)
  1. COSENTYX [Suspect]
     Active Substance: SECUKINUMAB
     Indication: PRODUCT USED FOR UNKNOWN INDICATION
     Dosage: UNK
     Route: 065
     Dates: start: 2018

REACTIONS (5)
  - Rash generalised [Unknown]
  - Hypersensitivity [Unknown]
  - Swelling of eyelid [Unknown]
  - Ear swelling [Unknown]
  - Swelling face [Unknown]

NARRATIVE: CASE EVENT DATE: 201811
